FAERS Safety Report 7738480-6 (Version None)
Quarter: 2011Q3

REPORT INFORMATION
  Report Type: 
  Country: None (occurrence: None)
  Receive Date: 20110908
  Receipt Date: 20110831
  Transmission Date: 20111222
  Serious: Yes (Hospitalization)
  Sender: FDA-Public Use
  Company Number: GB-BAXTER-2011BH028368

PATIENT
  Age: 65 Year
  Sex: Male

DRUGS (2)
  1. ALBUMIN (HUMAN) [Suspect]
     Indication: PLASMAPHERESIS
     Route: 042
     Dates: start: 20110806, end: 20110806
  2. ALBUMIN (HUMAN) [Suspect]
     Indication: OFF LABEL USE
     Route: 042
     Dates: start: 20110806, end: 20110806

REACTIONS (4)
  - HYPERSENSITIVITY [None]
  - STRIDOR [None]
  - COUGH [None]
  - THROAT TIGHTNESS [None]
